FAERS Safety Report 23046185 (Version 1)
Quarter: 2023Q4

REPORT INFORMATION
  Report Type: Spontaneous
  Country: US (occurrence: US)
  Receive Date: 20231009
  Receipt Date: 20231009
  Transmission Date: 20240110
  Serious: No
  Sender: FDA-Public Use
  Company Number: US-AMGEN-USASP2023176429

PATIENT

DRUGS (1)
  1. REPATHA [Suspect]
     Active Substance: EVOLOCUMAB
     Indication: Cardiovascular disorder
     Dosage: UNK
     Route: 065

REACTIONS (5)
  - Carpal tunnel decompression [Unknown]
  - Pain in extremity [Unknown]
  - Gait disturbance [Unknown]
  - Muscular weakness [Unknown]
  - Arthralgia [Unknown]
